FAERS Safety Report 8516378 (Version 4)
Quarter: 2012Q4

REPORT INFORMATION
  Report Type: 
  Country: US (occurrence: US)
  Receive Date: 20120417
  Receipt Date: 20121220
  Transmission Date: 20130627
  Serious: No
  Sender: FDA-Public Use
  Company Number: US-ASTRAZENECA-2011SE14577

PATIENT
  Age: 55 Year
  Sex: Female

DRUGS (2)
  1. ARIMIDEX [Suspect]
     Route: 048
  2. NEXIUM [Suspect]
     Route: 048

REACTIONS (13)
  - Gastrooesophageal reflux disease [Unknown]
  - Dysphagia [Unknown]
  - Aphagia [Unknown]
  - Choking [Unknown]
  - Regurgitation [Unknown]
  - Adverse event [Unknown]
  - Skin discolouration [Unknown]
  - Dyspepsia [Unknown]
  - Gastric disorder [Unknown]
  - Abdominal discomfort [Unknown]
  - Abdominal discomfort [Unknown]
  - Insomnia [Unknown]
  - Drug dose omission [Unknown]
